FAERS Safety Report 6933080-X (Version None)
Quarter: 2010Q3

REPORT INFORMATION
  Report Type: 
  Country: None (occurrence: None)
  Receive Date: 20100819
  Receipt Date: 20100812
  Transmission Date: 20110219
  Serious: Yes (Hospitalization)
  Sender: FDA-Public Use
  Company Number: JP-ABBOTT-10P-087-0632266-00

PATIENT
  Sex: Female

DRUGS (12)
  1. HUMIRA [Suspect]
     Indication: RHEUMATOID ARTHRITIS
     Route: 058
     Dates: start: 20100204, end: 20100218
  2. PREDNISOLONE [Concomitant]
     Indication: RHEUMATOID ARTHRITIS
     Dosage: DAILY DOSE: 7.5MG
     Route: 048
     Dates: start: 20080801, end: 20100209
  3. PREDNISOLONE [Concomitant]
     Dosage: DAILY DOSE: 10MG
     Route: 048
     Dates: start: 20100210, end: 20100302
  4. LOXOPROFEN SODIUM HYDRATE [Concomitant]
     Indication: RHEUMATOID ARTHRITIS
     Route: 048
     Dates: start: 20080801
  5. ALFACALCIDOL [Concomitant]
     Indication: OSTEOPOROSIS PROPHYLAXIS
     Route: 048
     Dates: start: 20080801
  6. SULFAMETHOXAZOLE AND TRIMETHOPRIM [Concomitant]
     Indication: INFECTION PROPHYLAXIS
     Route: 048
     Dates: start: 20080801
  7. FAMOTIDINE [Concomitant]
     Indication: PROPHYLAXIS
     Route: 048
     Dates: start: 20080801
  8. FAMOTIDINE [Concomitant]
     Indication: GASTROINTESTINAL MUCOSAL DISORDER
  9. ISONIAZID [Concomitant]
     Indication: ANTIBIOTIC PROPHYLAXIS
     Route: 048
     Dates: start: 20100210, end: 20100307
  10. BENPROPERINE PHOSPHATE [Concomitant]
     Indication: PROPHYLAXIS
     Route: 048
     Dates: start: 20100210, end: 20100307
  11. BENPROPERINE PHOSPHATE [Concomitant]
     Indication: DISEASE COMPLICATION
  12. METHOTREXATE [Concomitant]
     Indication: PRODUCT USED FOR UNKNOWN INDICATION

REACTIONS (3)
  - DERMATOMYOSITIS [None]
  - RASH GENERALISED [None]
  - RASH PRURITIC [None]
